FAERS Safety Report 9124719 (Version 1)
Quarter: 2013Q1

REPORT INFORMATION
  Report Type: Spontaneous
  Country: US (occurrence: US)
  Receive Date: 20130227
  Receipt Date: 20130227
  Transmission Date: 20140127
  Serious: Yes (Other)
  Sender: FDA-Public Use
  Company Number: US-ABBOTT-13P-163-1053536-00

PATIENT
  Sex: Female
  Weight: 66.74 kg

DRUGS (13)
  1. HUMIRA [Suspect]
     Indication: CROHN^S DISEASE
     Dates: start: 201103, end: 2012
  2. HUMIRA [Suspect]
     Dates: start: 2012
  3. MICARDIS [Concomitant]
     Indication: HYPERTENSION
  4. TRIMTERENE HCTZ [Concomitant]
     Indication: HYPERTENSION
  5. ASACOL [Concomitant]
     Indication: CROHN^S DISEASE
  6. AZATHIOPRINE [Concomitant]
     Indication: ARTHRITIS
  7. VITAMIN D3 [Concomitant]
     Indication: VITAMIN SUPPLEMENTATION
  8. PROBIOTICS [Concomitant]
     Indication: SUPPLEMENTATION THERAPY
  9. NEXIUM [Concomitant]
     Indication: GASTROOESOPHAGEAL REFLUX DISEASE
  10. ALPHAGAN EYE DROPS [Concomitant]
     Indication: INTRAOCULAR PRESSURE INCREASED
  11. MELATONIN [Concomitant]
     Indication: SLEEP DISORDER THERAPY
  12. TRICOR [Concomitant]
     Indication: BLOOD TRIGLYCERIDES INCREASED
  13. BYSTOLIC [Concomitant]
     Indication: HYPERTENSION

REACTIONS (1)
  - Ovarian cyst [Unknown]
